FAERS Safety Report 12798353 (Version 2)
Quarter: 2016Q4

REPORT INFORMATION
  Report Type: Spontaneous
  Country: US (occurrence: US)
  Receive Date: 20160930
  Receipt Date: 20161028
  Transmission Date: 20170207
  Serious: Yes (Death, Hospitalization, Other)
  Sender: FDA-Public Use
  Company Number: US-ACADIA PHARMACEUTICALS INC.-ACA-2016-000747

PATIENT
  Age: 82 Year
  Sex: Male
  Weight: 86.17 kg

DRUGS (1)
  1. NUPLAZID [Suspect]
     Active Substance: PIMAVANSERIN TARTRATE
     Indication: PARKINSON^S DISEASE PSYCHOSIS
     Dosage: 34 MG, QD
     Route: 048
     Dates: start: 20160904, end: 20160912

REACTIONS (5)
  - Activities of daily living impaired [Unknown]
  - Death [Fatal]
  - Staphylococcal infection [Not Recovered/Not Resolved]
  - Weight decreased [Unknown]
  - Abasia [Unknown]

NARRATIVE: CASE EVENT DATE: 201609
